FAERS Safety Report 18460728 (Version 1)
Quarter: 2020Q4

REPORT INFORMATION
  Report Type: Spontaneous
  Country: ES (occurrence: ES)
  Receive Date: 20201104
  Receipt Date: 20201104
  Transmission Date: 20210114
  Serious: Yes (Other)
  Sender: FDA-Public Use
  Company Number: ES-AUROBINDO-AUR-APL-2017-17305

PATIENT
  Age: 45 Year
  Sex: Male

DRUGS (1)
  1. MIRTAZAPINE. [Suspect]
     Active Substance: MIRTAZAPINE
     Indication: PROGRESSIVE MULTIFOCAL LEUKOENCEPHALOPATHY
     Dosage: 15 MILLIGRAM, TWO TIMES A DAY (15 MG, BID VIA NG TUBE)
     Route: 065

REACTIONS (1)
  - Drug ineffective for unapproved indication [Not Recovered/Not Resolved]
